FAERS Safety Report 7132969-9 (Version None)
Quarter: 2010Q4

REPORT INFORMATION
  Report Type: 
  Country: None (occurrence: None)
  Receive Date: 20101202
  Receipt Date: 20101125
  Transmission Date: 20110411
  Serious: Yes (Other)
  Sender: FDA-Public Use
  Company Number: US-MERCK-1010USA01819

PATIENT
  Age: 81 Year
  Sex: Male

DRUGS (2)
  1. COSOPT [Suspect]
     Route: 047
     Dates: start: 20091101
  2. COSOPT [Suspect]
     Route: 047
     Dates: start: 20101014

REACTIONS (3)
  - BLINDNESS TRANSIENT [None]
  - LACRIMATION INCREASED [None]
  - VISION BLURRED [None]
